FAERS Safety Report 6272513-1 (Version None)
Quarter: 2009Q3

REPORT INFORMATION
  Report Type: 
  Country: None (occurrence: None)
  Receive Date: 20090717
  Receipt Date: 20090709
  Transmission Date: 20100115
  Serious: Yes (Other)
  Sender: FDA-Public Use
  Company Number: US-PFIZER INC-2009238989

PATIENT
  Sex: Female
  Weight: 83.914 kg

DRUGS (4)
  1. CELEBREX [Suspect]
     Indication: ARTHRITIS
  2. CELEBREX [Suspect]
  3. LEVOTHYROXINE [Concomitant]
     Dosage: UNK
  4. CYTOMEL [Concomitant]
     Dosage: UNK

REACTIONS (6)
  - ARTHRITIS [None]
  - DIARRHOEA [None]
  - LYMPH NODE PAIN [None]
  - LYMPHADENOPATHY [None]
  - MYALGIA [None]
  - VOMITING [None]
